FAERS Safety Report 4918959-2 (Version None)
Quarter: 2006Q1

REPORT INFORMATION
  Report Type: 
  Country: None (occurrence: None)
  Receive Date: 20060222
  Receipt Date: 20060207
  Transmission Date: 20060701
  Serious: Yes (Hospitalization)
  Sender: FDA-Public Use
  Company Number: JP-JPN-A200600508

PATIENT
  Age: 61 Year
  Sex: Female
  Weight: 31 kg

DRUGS (9)
  1. ZANTAC [Suspect]
     Indication: GASTRIC ULCER
     Dosage: 150MG PER DAY
     Route: 048
     Dates: end: 20060202
  2. SELBEX [Concomitant]
     Indication: GASTRIC ULCER
     Dosage: 150MG PER DAY
     Route: 048
     Dates: start: 20050101
  3. PERSANTIN [Concomitant]
     Indication: ARTERIOSCLEROSIS OBLITERANS
     Dosage: 75MG PER DAY
     Route: 048
     Dates: start: 20050101
  4. SAIKO-KEISHI-KANKYO-TO [Concomitant]
     Indication: GASTRIC ULCER
     Dosage: 5G PER DAY
     Route: 048
     Dates: start: 20050101
  5. FULSTAN [Concomitant]
     Indication: HYPERPARATHYROIDISM SECONDARY
     Dosage: .3MCG PER DAY
     Route: 048
     Dates: start: 20060109
  6. RENAGEL [Concomitant]
     Indication: HYPERPHOSPHATAEMIA
     Dosage: 1500MG PER DAY
     Route: 048
     Dates: start: 20050101
  7. EPADEL [Concomitant]
     Indication: ARTERIOSCLEROSIS OBLITERANS
     Dosage: 900MG PER DAY
     Route: 048
     Dates: start: 20050101
  8. ORENGEDOKUTO [Concomitant]
     Indication: RESTLESS LEGS SYNDROME
     Dosage: 6G PER DAY
     Route: 048
     Dates: start: 20050101
  9. OMEPRAL [Concomitant]
     Indication: GASTRIC ULCER
     Dosage: 20MG PER DAY
     Route: 048
     Dates: start: 20060203

REACTIONS (8)
  - ABASIA [None]
  - ASTHENIA [None]
  - CERVICAL MYELOPATHY [None]
  - DIFFICULTY IN WALKING [None]
  - DYSKINESIA [None]
  - FALL [None]
  - MYOCLONUS [None]
  - TREMOR [None]
